FAERS Safety Report 16271432 (Version 3)
Quarter: 2019Q2

REPORT INFORMATION
  Report Type: Spontaneous
  Country: US (occurrence: US)
  Receive Date: 20190505
  Receipt Date: 20190605
  Transmission Date: 20190711
  Serious: Yes (Disabling, Other)
  Sender: FDA-Public Use
  Company Number: US-CONCORDIA PHARMACEUTICALS INC.-E2B_00019627

PATIENT
  Age: 65 Year
  Sex: Male

DRUGS (5)
  1. PREDNISOLONE. [Suspect]
     Active Substance: PREDNISOLONE
     Indication: VISION BLURRED
  2. OFLOXACIN. [Concomitant]
     Active Substance: OFLOXACIN
     Dosage: DROPS
  3. PREDNISOLONE. [Suspect]
     Active Substance: PREDNISOLONE
     Indication: OCULAR HYPERAEMIA
     Dosage: DROPS
     Route: 061
  4. PREDNISOLONE. [Suspect]
     Active Substance: PREDNISOLONE
     Indication: CORNEAL OEDEMA
  5. PREDNISOLONE. [Suspect]
     Active Substance: PREDNISOLONE
     Indication: EYE PAIN

REACTIONS (2)
  - Microsporidia infection [Recovering/Resolving]
  - Keratitis [Recovering/Resolving]
